FAERS Safety Report 10078667 (Version 2)
Quarter: 2014Q2

REPORT INFORMATION
  Report Type: Spontaneous
  Country: JP (occurrence: JP)
  Receive Date: 20140415
  Receipt Date: 20140530
  Transmission Date: 20141212
  Serious: Yes (Death, Hospitalization)
  Sender: FDA-Public Use
  Company Number: JP-TEVA-475461ISR

PATIENT
  Age: 77 Year
  Sex: Male

DRUGS (10)
  1. FILGRASTIM BS INJ. NK [Suspect]
     Indication: NEUTROPENIA
     Dosage: 75 MICROGRAM/M2 DAILY;
     Route: 058
     Dates: start: 20131130, end: 20131130
  2. FILGRASTIM BS INJ. NK [Suspect]
     Dosage: 75 MICROGRAM/M2 DAILY;
     Route: 058
     Dates: start: 20131211, end: 20131215
  3. FILGRASTIM BS INJ. NK [Suspect]
     Dosage: 75 MICROGRAM/M2 DAILY;
     Route: 058
     Dates: start: 20131220, end: 20131223
  4. CALSED [Concomitant]
     Dosage: 40 MILLIGRAM DAILY;
     Route: 042
     Dates: start: 20131009, end: 20131219
  5. GASCON [Concomitant]
     Dosage: 120 MILLIGRAM DAILY;
     Route: 048
     Dates: start: 20130917, end: 20140114
  6. DIART [Concomitant]
     Dosage: 60 MILLIGRAM DAILY;
     Route: 048
     Dates: start: 201303, end: 20140114
  7. NOVORAPID [Concomitant]
     Dosage: 30 UNITS/DAY
     Route: 058
     Dates: start: 20130829, end: 20140110
  8. HUMILIN N [Concomitant]
     Dosage: 4 UNITS/DAY
     Route: 058
     Dates: start: 201310, end: 20131219
  9. DUROTEP MT PATCH [Concomitant]
     Dosage: 2.1 MILLIGRAM DAILY;
     Route: 062
     Dates: start: 20130921, end: 20140113
  10. OXINORM [Concomitant]
     Dosage: 10 MILLIGRAM DAILY;
     Route: 048
     Dates: start: 201310, end: 20140116

REACTIONS (2)
  - Condition aggravated [Fatal]
  - Pyrexia [Not Recovered/Not Resolved]
